FAERS Safety Report 15075456 (Version 2)
Quarter: 2023Q4

REPORT INFORMATION
  Report Type: Report from Study
  Country: US (occurrence: US)
  Receive Date: 20180627
  Receipt Date: 20231128
  Transmission Date: 20240109
  Serious: Yes (Other)
  Sender: FDA-Public Use
  Company Number: US-SAOL THERAPEUTICS-2018SAO00374

PATIENT
  Age: 66 Year
  Sex: Female

DRUGS (24)
  1. BACLOFEN [Suspect]
     Active Substance: BACLOFEN
     Dosage: 19.98 ?G, \DAY
     Dates: start: 20170216, end: 20170525
  2. BACLOFEN [Suspect]
     Active Substance: BACLOFEN
     Dosage: 39.66 ?G, \DAY - MAX
     Dates: start: 20170216, end: 20170325
  3. BACLOFEN [Suspect]
     Active Substance: BACLOFEN
     Dosage: 18.02 ?G, \DAY
     Dates: start: 20170525
  4. BACLOFEN [Suspect]
     Active Substance: BACLOFEN
     Dosage: 57.45 ?G, \DAY - MAX
     Dates: start: 20170525
  5. BACLOFEN [Suspect]
     Active Substance: BACLOFEN
     Dosage: 19.01 ?G, \DAY
     Route: 037
     Dates: start: 20171207
  6. BACLOFEN [Suspect]
     Active Substance: BACLOFEN
     Dosage: 58.40 ?G, \DAY - MAX
     Dates: start: 20171207
  7. BACLOFEN [Suspect]
     Active Substance: BACLOFEN
     Dosage: 19.99 ?G, \DAY
     Dates: start: 20180226
  8. BACLOFEN [Suspect]
     Active Substance: BACLOFEN
     Dosage: 59.32 ?G, \DAY - MAX
     Dates: start: 20180226
  9. BUPIVACAINE [Suspect]
     Active Substance: BUPIVACAINE
     Dosage: 2.998 MG, \DAY
     Dates: start: 20170216, end: 20170525
  10. BUPIVACAINE [Suspect]
     Active Substance: BUPIVACAINE
     Dosage: 5.949 MG, \DAY- MAX
     Dates: start: 20170216, end: 20170525
  11. BUPIVACAINE [Suspect]
     Active Substance: BUPIVACAINE
     Dosage: 2.704 MG, \DAY
     Dates: start: 20170525
  12. BUPIVACAINE [Suspect]
     Active Substance: BUPIVACAINE
     Dosage: 8.617 MG, \DAY- MAX
     Dates: start: 20170525
  13. BUPIVACAINE [Suspect]
     Active Substance: BUPIVACAINE
     Dosage: 2.852 MG, \DAY
     Route: 037
     Dates: start: 20171207
  14. BUPIVACAINE [Suspect]
     Active Substance: BUPIVACAINE
     Dosage: 8.760 MG, \DAY- MAX
     Dates: start: 20171207
  15. BUPIVACAINE [Suspect]
     Active Substance: BUPIVACAINE
     Dosage: 2.999 MG, \DAY
     Dates: start: 20180226
  16. BUPIVACAINE [Suspect]
     Active Substance: BUPIVACAINE
     Dosage: 8.898 MG, \DAY- MAX
     Dates: start: 20180226
  17. HYDROMORPHONE [Suspect]
     Active Substance: HYDROMORPHONE
     Dosage: 0.1998 MG, \DAY
     Dates: start: 20170216, end: 20170525
  18. HYDROMORPHONE [Suspect]
     Active Substance: HYDROMORPHONE
     Dosage: 0.3966 MG, \DAY - MAX
     Dates: start: 20170216, end: 20170525
  19. HYDROMORPHONE [Suspect]
     Active Substance: HYDROMORPHONE
     Dosage: 0.1802 MG, \DAY
     Dates: start: 20170525
  20. HYDROMORPHONE [Suspect]
     Active Substance: HYDROMORPHONE
     Dosage: 0.5745 MG, \DAY- MAX
     Dates: start: 20170525
  21. HYDROMORPHONE [Suspect]
     Active Substance: HYDROMORPHONE
     Dosage: 0.1901 MG, \DAY
     Route: 037
     Dates: start: 20171207
  22. HYDROMORPHONE [Suspect]
     Active Substance: HYDROMORPHONE
     Dosage: 0.5840 MG, \DAY - MAX
     Dates: start: 20171207
  23. HYDROMORPHONE [Suspect]
     Active Substance: HYDROMORPHONE
     Dosage: 0.1999 MG, \DAY
     Dates: start: 20180226
  24. HYDROMORPHONE [Suspect]
     Active Substance: HYDROMORPHONE
     Dosage: 0.5932 MG, \DAY
     Dates: start: 20180226

REACTIONS (12)
  - Drug withdrawal syndrome [Recovered/Resolved]
  - Asthenia [Recovered/Resolved]
  - Depression [Recovered/Resolved]
  - Anxiety [Recovered/Resolved]
  - Muscle spasms [Recovered/Resolved]
  - Pain [Recovered/Resolved]
  - Tremor [Recovered/Resolved]
  - Chills [Recovered/Resolved]
  - Somnolence [Recovered/Resolved]
  - Complication associated with device [Recovered/Resolved]
  - Fatigue [Recovered/Resolved]
  - Blood pressure decreased [Recovered/Resolved]

NARRATIVE: CASE EVENT DATE: 20170525
